FAERS Safety Report 16417122 (Version 1)
Quarter: 2019Q2

REPORT INFORMATION
  Report Type: Spontaneous
  Country: US (occurrence: US)
  Receive Date: 20190611
  Receipt Date: 20190611
  Transmission Date: 20190711
  Serious: Yes (Other)
  Sender: FDA-Public Use
  Company Number: US-NAPPMUNDI-USA-2019-0147416

PATIENT
  Age: 38 Year
  Sex: Male

DRUGS (2)
  1. XANAX [Suspect]
     Active Substance: ALPRAZOLAM
     Indication: PRODUCT USED FOR UNKNOWN INDICATION
     Route: 048
  2. OXYCODONE HYDROCHLORIDE (SIMILAR TO NDA 22-272) [Suspect]
     Active Substance: OXYCODONE HYDROCHLORIDE
     Indication: INTERVERTEBRAL DISC PROTRUSION
     Route: 048

REACTIONS (9)
  - Road traffic accident [Unknown]
  - Suicidal ideation [Unknown]
  - Drug abuse [Unknown]
  - Substance dependence [Unknown]
  - Cognitive disorder [Unknown]
  - Neck surgery [Unknown]
  - Abnormal behaviour [Unknown]
  - Weight decreased [Unknown]
  - Unevaluable event [Unknown]
